FAERS Safety Report 13608041 (Version 1)
Quarter: 2017Q2

REPORT INFORMATION
  Report Type: Spontaneous
  Country: US (occurrence: US)
  Receive Date: 20170602
  Receipt Date: 20170602
  Transmission Date: 20170830
  Serious: Yes (Hospitalization)
  Sender: FDA-Public Use
  Company Number: US-WEST-WARD PHARMACEUTICALS CORP.-US-H14001-17-01738

PATIENT
  Age: 26 Year
  Sex: Female

DRUGS (6)
  1. SOLU-MEDROL [Suspect]
     Active Substance: METHYLPREDNISOLONE SODIUM SUCCINATE
     Indication: MIGRAINE
  2. BENADRYL [Suspect]
     Active Substance: DIPHENHYDRAMINE HYDROCHLORIDE
     Indication: MIGRAINE
  3. SALINE [Suspect]
     Active Substance: SODIUM CHLORIDE
     Indication: MENINGITIS VIRAL
     Route: 042
     Dates: start: 20161112, end: 201611
  4. SOLU-MEDROL [Suspect]
     Active Substance: METHYLPREDNISOLONE SODIUM SUCCINATE
     Indication: MENINGITIS VIRAL
     Route: 042
     Dates: start: 20161112, end: 201611
  5. BENADRYL [Suspect]
     Active Substance: DIPHENHYDRAMINE HYDROCHLORIDE
     Indication: MENINGITIS VIRAL
     Route: 042
     Dates: start: 20161112, end: 201611
  6. SALINE [Suspect]
     Active Substance: SODIUM CHLORIDE
     Indication: MIGRAINE

REACTIONS (7)
  - Chest pain [Unknown]
  - Peripheral swelling [Unknown]
  - Electrocardiogram abnormal [Unknown]
  - Troponin increased [Recovering/Resolving]
  - Lipohypertrophy [Unknown]
  - Pain [Unknown]
  - Dyspnoea [Unknown]

NARRATIVE: CASE EVENT DATE: 201611
